FAERS Safety Report 19599906 (Version 4)
Quarter: 2021Q3

REPORT INFORMATION
  Report Type: Spontaneous
  Country: DE (occurrence: DE)
  Receive Date: 20210722
  Receipt Date: 20210906
  Transmission Date: 20211014
  Serious: Yes (Death, Hospitalization, Other)
  Sender: FDA-Public Use
  Company Number: DE-PFIZER INC-2021867000

PATIENT
  Age: 93 Year
  Sex: Female
  Weight: 42 kg

DRUGS (16)
  1. PANTOZOL [Suspect]
     Active Substance: PANTOPRAZOLE SODIUM
     Dosage: 80 MG, DAILY
     Route: 042
     Dates: start: 20190802
  2. AMIODARONE [Suspect]
     Active Substance: AMIODARONE
     Dosage: UNK
     Route: 065
     Dates: start: 20190802
  3. ARTERENOL [Suspect]
     Active Substance: NOREPINEPHRINE HYDROCHLORIDE, (+/-)-
     Dosage: UNK; TOGETHER WITH NACL 0.9%
     Route: 065
     Dates: start: 20190802
  4. RINGER LOESUNG [Concomitant]
     Dosage: 1500 ML DAILY; AS PERMANENT DRIP
     Route: 042
     Dates: start: 20190802
  5. UNACID (AMPICILLIN SODIUM/SULBACTAM SODIUM) [Suspect]
     Active Substance: AMPICILLIN SODIUM\SULBACTAM SODIUM
     Dosage: 3 G, DAILY
     Route: 042
  6. UNACID (AMPICILLIN SODIUM/SULBACTAM SODIUM) [Suspect]
     Active Substance: AMPICILLIN SODIUM\SULBACTAM SODIUM
     Dosage: 6 G, DAILY
     Route: 042
  7. SUFENTA [Suspect]
     Active Substance: SUFENTANIL CITRATE
     Dosage: UNK; TOGETHER WITH NACL 0.9%
     Route: 065
     Dates: start: 20190802
  8. ADRENALIN (EPINEPHRINE) [Suspect]
     Active Substance: EPINEPHRINE
     Dosage: 10 MICROGRAM
     Route: 065
  9. KETAMINE [Suspect]
     Active Substance: KETAMINE
     Indication: ANAESTHESIA
     Dosage: UNK
     Route: 065
  10. SODIUM BICARBONATE. [Concomitant]
     Active Substance: SODIUM BICARBONATE
     Dosage: 400 MILLILITER, QD
  11. TRANEXAMIC ACID. [Suspect]
     Active Substance: TRANEXAMIC ACID
     Dosage: 1000 MG, DAILY
     Route: 042
     Dates: start: 20190802, end: 20190802
  12. SUPRARENIN [Suspect]
     Active Substance: EPINEPHRINE
     Dosage: UNK; 4 AMPOULES
     Route: 065
     Dates: start: 20190802
  13. ATROPIN [ATROPINE] [Suspect]
     Active Substance: ATROPINE
     Dosage: UNK; 1 AMPOULE
     Route: 065
     Dates: start: 20190802
  14. MIDAZOLAM. [Suspect]
     Active Substance: MIDAZOLAM
     Indication: ANAESTHESIA
     Dosage: TOGETHER WITH NACL 0.9%, 1X/DAY
     Route: 065
     Dates: start: 20190802
  15. TRANEXAMSAEURE ACCORD [Suspect]
     Active Substance: TRANEXAMIC ACID
     Dosage: 1000 MILLIGRAM, QD
     Route: 042
     Dates: start: 20190802, end: 20190802
  16. NACL [Concomitant]
     Active Substance: SODIUM CHLORIDE
     Dosage: UNK

REACTIONS (18)
  - Gastrointestinal haemorrhage [Fatal]
  - Ischaemia [Fatal]
  - Anaemia [Fatal]
  - Abdominal distension [Fatal]
  - Hepatic failure [Fatal]
  - Haemorrhage [Fatal]
  - Aspiration [Fatal]
  - Coagulopathy [Fatal]
  - Haematemesis [Fatal]
  - Acidosis [Fatal]
  - Myocardial infarction [Fatal]
  - Cardiac arrest [Recovered/Resolved]
  - Dysphonia [Fatal]
  - Toxicity to various agents [Fatal]
  - Acute respiratory failure [Fatal]
  - Cardiogenic shock [Fatal]
  - Ventricular fibrillation [Fatal]
  - Bundle branch block right [Fatal]

NARRATIVE: CASE EVENT DATE: 201907
